FAERS Safety Report 21937605 (Version 1)
Quarter: 2023Q1

REPORT INFORMATION
  Report Type: Spontaneous
  Country: IT (occurrence: IT)
  Receive Date: 20230201
  Receipt Date: 20230201
  Transmission Date: 20230418
  Serious: Yes (Other)
  Sender: FDA-Public Use
  Company Number: IT-BEH-2023154056

PATIENT
  Age: 39 Year
  Sex: Female

DRUGS (2)
  1. HUMAN IMMUNOGLOBULIN G [Suspect]
     Active Substance: HUMAN IMMUNOGLOBULIN G
     Indication: Guillain-Barre syndrome
     Dosage: 2 G/KG
     Route: 042
  2. NIMODIPINE [Concomitant]
     Active Substance: NIMODIPINE
     Indication: Vasospasm
     Dosage: 60 MILLIGRAM, Q6HR
     Route: 048

REACTIONS (2)
  - Reversible cerebral vasoconstriction syndrome [Unknown]
  - Headache [Unknown]
